FAERS Safety Report 7588011-9 (Version None)
Quarter: 2011Q3

REPORT INFORMATION
  Report Type: 
  Country: None (occurrence: None)
  Receive Date: 20110705
  Receipt Date: 20110628
  Transmission Date: 20111222
  Serious: No
  Sender: FDA-Public Use
  Company Number: US-PFIZER INC-2011076640

PATIENT
  Sex: Female
  Weight: 67.12 kg

DRUGS (3)
  1. NORPACE [Concomitant]
     Dosage: 150 MG, 1X/DAY
  2. CALAN [Suspect]
     Dosage: 90 MG, 1X/DAY
     Route: 048
     Dates: start: 20000101
  3. CALAN [Suspect]
     Indication: ATRIAL FIBRILLATION
     Dosage: 180 MG, DAILY
     Route: 048
     Dates: start: 19850101, end: 20000101

REACTIONS (1)
  - FATIGUE [None]
